FAERS Safety Report 10339523 (Version 1)
Quarter: 2014Q3

REPORT INFORMATION
  Report Type: Spontaneous
  Country: US (occurrence: None)
  Receive Date: 20140723
  Receipt Date: 20140723
  Transmission Date: 20150326
  Serious: Yes (Life-Threatening, Hospitalization, Disabling)
  Sender: FDA-Public Use
  Company Number: None

PATIENT
  Age: 69 Year
  Sex: Female
  Weight: 81.65 kg

DRUGS (11)
  1. METACHOPRAM [Concomitant]
  2. VITAMIN C [Concomitant]
     Active Substance: ASCORBIC ACID
  3. PANTOPRAZOLE [Concomitant]
     Active Substance: PANTOPRAZOLE SODIUM
  4. GABAPENTIN. [Concomitant]
     Active Substance: GABAPENTIN
  5. LANTUS [Concomitant]
     Active Substance: INSULIN GLARGINE
  6. POTASSIUM CHLORIDE. [Concomitant]
     Active Substance: POTASSIUM CHLORIDE
  7. BABY ASPIRIN [Concomitant]
     Active Substance: ASPIRIN
  8. NOVAHOG [Concomitant]
  9. IRON [Concomitant]
     Active Substance: IRON
  10. MULTI VITAMIN WITH MINERALS [Concomitant]
  11. METFORMIN [Suspect]
     Active Substance: METFORMIN HYDROCHLORIDE
     Indication: DIABETES MELLITUS
     Dosage: 1,000 MG,  2 PILLS, TWICE DAILY, BY MOUTH
     Route: 048
     Dates: start: 20061116, end: 20140403

REACTIONS (7)
  - Vomiting [None]
  - Apparent death [None]
  - Pancreatitis [None]
  - Visual acuity reduced [None]
  - Renal failure [None]
  - Gait disturbance [None]
  - Disorientation [None]

NARRATIVE: CASE EVENT DATE: 20140424
